FAERS Safety Report 6410099-9 (Version None)
Quarter: 2009Q4

REPORT INFORMATION
  Report Type: 
  Country: None (occurrence: None)
  Receive Date: 20091022
  Receipt Date: 20091015
  Transmission Date: 20100525
  Serious: No
  Sender: FDA-Public Use
  Company Number: US-BAYER-200936498NA

PATIENT
  Sex: Female

DRUGS (1)
  1. NEXAVAR [Suspect]
     Indication: HEPATIC NEOPLASM MALIGNANT
     Dosage: TOTAL DAILY DOSE: 400 MG  UNIT DOSE: 200 MG
     Route: 048
     Dates: start: 20090501

REACTIONS (5)
  - CHEST PAIN [None]
  - HEART RATE IRREGULAR [None]
  - HOT FLUSH [None]
  - INCREASED TENDENCY TO BRUISE [None]
  - MYALGIA [None]
